FAERS Safety Report 21616699 (Version 5)
Quarter: 2023Q4

REPORT INFORMATION
  Report Type: Spontaneous
  Country: US (occurrence: US)
  Receive Date: 20221118
  Receipt Date: 20231218
  Transmission Date: 20240110
  Serious: No
  Sender: FDA-Public Use
  Company Number: US-SA-SAC20221116000452

PATIENT
  Age: 61 Year
  Sex: Male

DRUGS (32)
  1. DUPIXENT [Suspect]
     Active Substance: DUPILUMAB
     Indication: Dermatitis atopic
     Dosage: 300 MG, QOW
     Route: 058
     Dates: start: 20210702
  2. DUPIXENT [Suspect]
     Active Substance: DUPILUMAB
     Indication: Eczema
  3. DUPIXENT [Suspect]
     Active Substance: DUPILUMAB
     Indication: Asthma
  4. DUPIXENT [Suspect]
     Active Substance: DUPILUMAB
     Indication: Type 2 diabetes mellitus
  5. ACETYLCYSTEINE [Concomitant]
     Active Substance: ACETYLCYSTEINE
     Dosage: UNK
  6. ALBUTEROL SULFATE [Concomitant]
     Active Substance: ALBUTEROL SULFATE
     Dosage: UNK
  7. ALBUTEROL SULFATE [Concomitant]
     Active Substance: ALBUTEROL SULFATE
     Dosage: UNK
  8. AMLODIPINE [Concomitant]
     Active Substance: AMLODIPINE BESYLATE
     Dosage: UNK
  9. AMLODIPINE [Concomitant]
     Active Substance: AMLODIPINE BESYLATE
     Dosage: UNK
  10. AMLODIPINE [Concomitant]
     Active Substance: AMLODIPINE BESYLATE
     Dosage: UNK
  11. AMLODIPINE [Concomitant]
     Active Substance: AMLODIPINE BESYLATE
     Dosage: UNK
  12. AMLODIPINE [Concomitant]
     Active Substance: AMLODIPINE BESYLATE
     Dosage: UNK
  13. AZELASTINE [Concomitant]
     Active Substance: AZELASTINE\AZELASTINE HYDROCHLORIDE
     Dosage: UNK
  14. AZELASTINE [Concomitant]
     Active Substance: AZELASTINE\AZELASTINE HYDROCHLORIDE
     Dosage: UNK
  15. BACLOFEN [Concomitant]
     Active Substance: BACLOFEN
     Dosage: UNK
  16. BREO ELLIPTA [Concomitant]
     Active Substance: FLUTICASONE FUROATE\VILANTEROL TRIFENATATE
     Dosage: INH 200-25;
  17. BREO ELLIPTA [Concomitant]
     Active Substance: FLUTICASONE FUROATE\VILANTEROL TRIFENATATE
     Dosage: UNK
  18. CLOBETASOL [Concomitant]
     Active Substance: CLOBETASOL
     Dosage: UNK
  19. CLOBETASOL [Concomitant]
     Active Substance: CLOBETASOL
     Dosage: UNK
  20. GABAPENTIN [Concomitant]
     Active Substance: GABAPENTIN
     Dosage: UNK
  21. HYDROCHLOROTHIAZIDE [Concomitant]
     Active Substance: HYDROCHLOROTHIAZIDE
     Dosage: UNK
  22. OMEPRAZOLE [Concomitant]
     Active Substance: OMEPRAZOLE
     Dosage: UNK
  23. OXYCODONE [Concomitant]
     Active Substance: OXYCODONE
     Dosage: UNK
  24. PERMETHRIN [Concomitant]
     Active Substance: PERMETHRIN
     Dosage: UNK
  25. PIMECROLIMUS [Concomitant]
     Active Substance: PIMECROLIMUS
     Dosage: UNK
  26. PREGABALIN [Concomitant]
     Active Substance: PREGABALIN
     Dosage: UNK
  27. TAMSULOSIN [Concomitant]
     Active Substance: TAMSULOSIN
     Dosage: UNK
  28. TIZANIDINE [Concomitant]
     Active Substance: TIZANIDINE
     Dosage: UNK
  29. METHYLPREDNISOLONE [Concomitant]
     Active Substance: METHYLPREDNISOLONE
     Dosage: UNK
  30. OMEPRAZOLE\SODIUM BICARBONATE [Concomitant]
     Active Substance: OMEPRAZOLE\SODIUM BICARBONATE
     Dosage: 40-1100
  31. HYDROXYCHLOROQUINE SULFATE [Concomitant]
     Active Substance: HYDROXYCHLOROQUINE SULFATE
     Dosage: UNK
  32. HYDROCORTISONE\NEOMYCIN SULFATE [Concomitant]
     Active Substance: HYDROCORTISONE\NEOMYCIN SULFATE
     Dosage: UNK

REACTIONS (17)
  - Pyrexia [Unknown]
  - Hyperhidrosis [Unknown]
  - Infection [Recovered/Resolved]
  - Sleep disorder [Unknown]
  - Infection [Unknown]
  - Rash [Recovered/Resolved]
  - Discomfort [Recovered/Resolved]
  - Asthma [Recovered/Resolved]
  - Impaired quality of life [Recovered/Resolved]
  - Dermatitis atopic [Unknown]
  - Asthma [Unknown]
  - Impaired quality of life [Unknown]
  - Eczema [Unknown]
  - Discomfort [Unknown]
  - Rash [Unknown]
  - Drug ineffective [Unknown]
  - Product use in unapproved indication [Unknown]

NARRATIVE: CASE EVENT DATE: 20210702
